FAERS Safety Report 19890117 (Version 1)
Quarter: 2021Q3

REPORT INFORMATION
  Report Type: Spontaneous
  Country: CN (occurrence: CN)
  Receive Date: 20210927
  Receipt Date: 20210927
  Transmission Date: 20211014
  Serious: Yes (Hospitalization, Other)
  Sender: FDA-Public Use
  Company Number: CN-PFIZER INC-202101206754

PATIENT
  Age: 49 Year
  Sex: Female
  Weight: 45 kg

DRUGS (6)
  1. PHARMORUBICIN [Suspect]
     Active Substance: EPIRUBICIN
     Indication: MALIGNANT MESENCHYMOMA METASTATIC
     Dosage: 100 MG, 1X/DAY
     Route: 041
     Dates: start: 20210819, end: 20210819
  2. ENDOSTAR [Suspect]
     Active Substance: ENDOSTATIN
     Indication: MALIGNANT MESENCHYMOMA METASTATIC
     Dosage: 30 MG, 1X/DAY
     Route: 041
     Dates: start: 20210818, end: 20210822
  3. HOLOXAN [Suspect]
     Active Substance: IFOSFAMIDE
     Indication: MALIGNANT MESENCHYMOMA METASTATIC
     Dosage: 2.5 G, 1X/DAY
     Route: 041
     Dates: start: 20210819, end: 20210822
  4. SODIUM CHLORIDE. [Concomitant]
     Active Substance: SODIUM CHLORIDE
     Dosage: 500 ML, 1X/DAY
     Route: 041
     Dates: start: 20210819, end: 20210822
  5. SODIUM CHLORIDE. [Concomitant]
     Active Substance: SODIUM CHLORIDE
     Dosage: 100 ML, 1X/DAY
     Route: 041
     Dates: start: 20210819, end: 20210819
  6. SODIUM CHLORIDE. [Concomitant]
     Active Substance: SODIUM CHLORIDE
     Indication: VEHICLE SOLUTION USE
     Dosage: 500 ML, 1X/DAY
     Route: 041
     Dates: start: 20210818, end: 20210822

REACTIONS (3)
  - White blood cell count decreased [Recovered/Resolved]
  - Cytopenia [Recovering/Resolving]
  - Haemoglobin decreased [Not Recovered/Not Resolved]

NARRATIVE: CASE EVENT DATE: 20210821
